FAERS Safety Report 4897377-X (Version None)
Quarter: 2006Q1

REPORT INFORMATION
  Report Type: 
  Country: None (occurrence: None)
  Receive Date: 20060130
  Receipt Date: 20060130
  Transmission Date: 20060701
  Serious: Yes (Other)
  Sender: FDA-Public Use
  Company Number: None

PATIENT
  Age: 26 Year
  Sex: Female
  Weight: 95.2554 kg

DRUGS (1)
  1. XENICAL [Suspect]

REACTIONS (2)
  - DIARRHOEA [None]
  - HAEMATOCHEZIA [None]
